FAERS Safety Report 9210161 (Version 3)
Quarter: 2013Q2

REPORT INFORMATION
  Report Type: Report from Study
  Country: AU (occurrence: AU)
  Receive Date: 20130404
  Receipt Date: 20130415
  Transmission Date: 20140414
  Serious: Yes (Other)
  Sender: FDA-Public Use
  Company Number: AU-ROCHE-1207896

PATIENT
  Age: 52 Year
  Sex: Female
  Weight: 56.6 kg

DRUGS (6)
  1. VEMURAFENIB [Suspect]
     Indication: METASTATIC MALIGNANT MELANOMA
     Dosage: ALTERNATING DOSE 480 MG;
     Route: 048
     Dates: start: 20120501, end: 20130313
  2. VEMURAFENIB [Suspect]
     Dosage: ALTERNATING DOSE 480 MG;
     Route: 048
     Dates: start: 20130402
  3. GDC-0973 [Suspect]
     Indication: METASTATIC MALIGNANT MELANOMA
     Dosage: DATE OF LAST DOSE PRIOR TO SAE 13/MAR/2013
     Route: 048
     Dates: start: 20120131
  4. PREDNEFRIN FORTE [Concomitant]
     Dosage: 1 DROP
     Route: 065
     Dates: start: 20130119
  5. PANADOL [Concomitant]
     Route: 065
     Dates: start: 20121108
  6. ZYRTEC [Concomitant]
     Dosage: 1 TABLET
     Route: 065
     Dates: start: 20121211

REACTIONS (1)
  - Glomerulonephritis [Recovered/Resolved]
